FAERS Safety Report 6630859-9 (Version None)
Quarter: 2010Q1

REPORT INFORMATION
  Report Type: 
  Country: None (occurrence: None)
  Receive Date: 20100311
  Receipt Date: 20100303
  Transmission Date: 20100710
  Serious: Yes (Disabling)
  Sender: FDA-Public Use
  Company Number: CH-ABBOTT-10P-151-0630102-00

PATIENT
  Age: 55 Year
  Sex: Male
  Weight: 70 kg

DRUGS (3)
  1. KALETRA [Suspect]
     Indication: HIV INFECTION
     Dosage: 200MG LOPINAVIR + 50 MG RITONAVIR
     Route: 048
     Dates: start: 20080101
  2. COMBIVIR [Concomitant]
     Indication: DRUG USE FOR UNKNOWN INDICATION
     Route: 048
     Dates: start: 19920101
  3. LESCOL [Concomitant]
     Indication: HYPERLIPIDAEMIA
     Route: 048
     Dates: start: 20050101

REACTIONS (2)
  - COGNITIVE DISORDER [None]
  - SOMNOLENCE [None]
